FAERS Safety Report 5893243-1 (Version None)
Quarter: 2008Q3

REPORT INFORMATION
  Report Type: 
  Country: None (occurrence: None)
  Receive Date: 20080923
  Receipt Date: 20080914
  Transmission Date: 20090109
  Serious: Yes (Other)
  Sender: FDA-Public Use
  Company Number: PHHO2005BE19826

PATIENT
  Sex: Female
  Weight: 58.7 kg

DRUGS (3)
  1. CGS 20267 T30748+TAB [Suspect]
     Indication: BREAST CANCER
     Dosage: 2.5 MG, QD
     Route: 048
     Dates: start: 20040922, end: 20051215
  2. CACIT D3 [Concomitant]
     Dosage: UNK, UNK
     Dates: start: 20040901
  3. DIXARIT [Concomitant]
     Dates: start: 20041004

REACTIONS (13)
  - DEBRIDEMENT [None]
  - DENTAL PROSTHESIS PLACEMENT [None]
  - ORAL DISCHARGE [None]
  - ORAL PAIN [None]
  - OSTEOMYELITIS [None]
  - OSTEONECROSIS [None]
  - PAIN IN JAW [None]
  - SOFT TISSUE INFECTION [None]
  - STOMATITIS [None]
  - TOOTH ABSCESS [None]
  - TOOTH DISORDER [None]
  - TOOTH EXTRACTION [None]
  - WOUND DECOMPOSITION [None]
